FAERS Safety Report 20675476 (Version 1)
Quarter: 2022Q2

REPORT INFORMATION
  Report Type: Spontaneous
  Country: ES (occurrence: ES)
  Receive Date: 20220405
  Receipt Date: 20220405
  Transmission Date: 20220721
  Serious: Yes (Hospitalization, Other)
  Sender: FDA-Public Use
  Company Number: None

PATIENT
  Age: 58 Year
  Sex: Female

DRUGS (6)
  1. METHYLPREDNISOLONE SODIUM SUCCINATE [Suspect]
     Active Substance: METHYLPREDNISOLONE SODIUM SUCCINATE
     Indication: Hypersensitivity
     Dosage: 40 MG, SINGLE DOSE
     Route: 030
     Dates: start: 20201020
  2. EBASTINE [Concomitant]
     Active Substance: EBASTINE
     Indication: Conjunctivitis allergic
     Dosage: 20 MG
     Route: 048
     Dates: start: 20190524
  3. FLUTICASONE FUROATE\VILANTEROL TRIFENATATE [Concomitant]
     Active Substance: FLUTICASONE FUROATE\VILANTEROL TRIFENATATE
     Indication: Asthma
     Dosage: 1.0 PUFF EACH /24 H
     Route: 050
     Dates: start: 20200922
  4. NASONEX [Concomitant]
     Active Substance: MOMETASONE FUROATE
     Indication: Rhinitis allergic
     Dosage: 100 UG, DAILY
     Route: 045
     Dates: start: 20170308
  5. TEBARAT [Concomitant]
     Indication: Conjunctivitis allergic
     Dosage: 1.0 DF, 1 DROP EVERY 12 HOURS, 2X/DAY
     Route: 047
     Dates: start: 20190513
  6. DAIVOBET [Concomitant]
     Active Substance: BETAMETHASONE DIPROPIONATE\CALCIPOTRIENE
     Indication: Psoriasis
     Dosage: 1 APPLICATION EVERY 12 HOURS
     Route: 061
     Dates: start: 20180809

REACTIONS (1)
  - Hypertensive crisis [Recovered/Resolved]

NARRATIVE: CASE EVENT DATE: 20201020
